FAERS Safety Report 12709590 (Version 1)
Quarter: 2016Q3

REPORT INFORMATION
  Report Type: Spontaneous
  Country: US (occurrence: None)
  Receive Date: 20160901
  Receipt Date: 20160901
  Transmission Date: 20161109
  Serious: Yes (Other)
  Sender: FDA-Public Use
  Company Number: None

PATIENT
  Age: 72 Year
  Sex: Female

DRUGS (8)
  1. OPSUMIT [Suspect]
     Active Substance: MACITENTAN
     Indication: PULMONARY ARTERIAL HYPERTENSION
     Route: 048
     Dates: start: 20160122
  2. TIOTROPIUM [Concomitant]
     Active Substance: TIOTROPIUM
  3. METFORMIN [Concomitant]
     Active Substance: METFORMIN HYDROCHLORIDE
  4. PANTOPRAZOLE [Concomitant]
     Active Substance: PANTOPRAZOLE SODIUM
  5. PRAVASTATIN. [Concomitant]
     Active Substance: PRAVASTATIN
  6. TRAMADOL. [Concomitant]
     Active Substance: TRAMADOL
  7. SILDENAFIL. [Concomitant]
     Active Substance: SILDENAFIL
  8. IPRATROPIUM [Concomitant]
     Active Substance: IPRATROPIUM

REACTIONS (3)
  - Blood bilirubin increased [None]
  - Oedema peripheral [None]
  - Treatment noncompliance [None]

NARRATIVE: CASE EVENT DATE: 20160608
